FAERS Safety Report 24946526 (Version 1)
Quarter: 2025Q1

REPORT INFORMATION
  Report Type: Spontaneous
  Country: KR (occurrence: KR)
  Receive Date: 20250210
  Receipt Date: 20250210
  Transmission Date: 20250409
  Serious: Yes (Other)
  Sender: COLLEGIUM PHARMACEUTICAL
  Company Number: KR-JNJFOC-20250160125

PATIENT
  Sex: Male
  Weight: 52 kg

DRUGS (2)
  1. NUCYNTA [Suspect]
     Active Substance: TAPENTADOL HYDROCHLORIDE
     Indication: Malignant hypertension
     Route: 065
     Dates: start: 20211008
  2. POLAPREZINC [Suspect]
     Active Substance: POLAPREZINC
     Indication: Malignant hypertension
     Route: 065
     Dates: start: 20211008

REACTIONS (1)
  - Loss of consciousness [Recovered/Resolved]

NARRATIVE: CASE EVENT DATE: 20211008
